FAERS Safety Report 6647464-0 (Version None)
Quarter: 2010Q1

REPORT INFORMATION
  Report Type: 
  Country: None (occurrence: None)
  Receive Date: 20100323
  Receipt Date: 20100323
  Transmission Date: 20100710
  Serious: Yes (Hospitalization)
  Sender: FDA-Public Use
  Company Number: None

PATIENT
  Age: 19 Year
  Sex: Male
  Weight: 81.6475 kg

DRUGS (1)
  1. TRAZODONE HCL [Suspect]
     Indication: INSOMNIA
     Dates: start: 20100311, end: 20100311

REACTIONS (6)
  - ERECTILE DYSFUNCTION [None]
  - GENITAL INJURY [None]
  - PAINFUL ERECTION [None]
  - PENILE PAIN [None]
  - PENILE SWELLING [None]
  - PRIAPISM [None]
